FAERS Safety Report 5033561-2 (Version None)
Quarter: 2006Q2

REPORT INFORMATION
  Report Type: 
  Country: None (occurrence: None)
  Receive Date: 20060623
  Receipt Date: 20060517
  Transmission Date: 20061013
  Serious: Yes (Hospitalization)
  Sender: FDA-Public Use
  Company Number: BE-ROCHE-448301

PATIENT
  Age: 42 Year
  Sex: Male
  Weight: 60 kg

DRUGS (4)
  1. PEG-INTERFERON ALFA 2A (RO 25-8310) [Suspect]
     Route: 058
     Dates: start: 20060105, end: 20060420
  2. RIBAVIRIN [Suspect]
     Route: 048
     Dates: start: 20060105, end: 20060425
  3. PARACETAMOL [Concomitant]
     Dosage: ON AN AS NEEDED BASIS (PRN)
     Dates: start: 20060120, end: 20060425
  4. ZOLPIDEM HEMITARTRATE [Concomitant]
     Dates: start: 20060331, end: 20060425

REACTIONS (4)
  - DELIRIUM [None]
  - LEGAL PROBLEM [None]
  - PSYCHOTIC DISORDER [None]
  - TREATMENT NONCOMPLIANCE [None]
